FAERS Safety Report 5977531-6 (Version None)
Quarter: 2008Q4

REPORT INFORMATION
  Report Type: 
  Country: None (occurrence: None)
  Receive Date: 20081125
  Receipt Date: 20081112
  Transmission Date: 20090506
  Serious: Yes (Other)
  Sender: FDA-Public Use
  Company Number: 8037896

PATIENT
  Sex: Female

DRUGS (2)
  1. KEPPRA [Suspect]
     Indication: EPILEPSY
     Dosage: 250 MG /D
     Dates: start: 20080923, end: 20081009
  2. KEPPRA [Suspect]
     Indication: EPILEPSY
     Dosage: 750 MG /D
     Dates: start: 20081010

REACTIONS (3)
  - BACK PAIN [None]
  - DRUG EXPOSURE DURING PREGNANCY [None]
  - ROAD TRAFFIC ACCIDENT [None]
